FAERS Safety Report 6201690-3 (Version None)
Quarter: 2009Q2

REPORT INFORMATION
  Report Type: 
  Country: None (occurrence: None)
  Receive Date: 20090520
  Receipt Date: 20090505
  Transmission Date: 20091009
  Serious: Yes (Death, Hospitalization, Other)
  Sender: FDA-Public Use
  Company Number: A-US2009-24630

PATIENT
  Age: 73 Year
  Sex: Female
  Weight: 68 kg

DRUGS (12)
  1. TRACLEER [Suspect]
     Indication: PULMONARY ARTERIAL HYPERTENSION
     Dosage: 125 MG, BID, ORAL; 62.5 MD, BID. ORAL
     Route: 048
     Dates: end: 20090320
  2. TRACLEER [Suspect]
     Indication: PULMONARY ARTERIAL HYPERTENSION
     Dosage: 125 MG, BID, ORAL; 62.5 MD, BID. ORAL
     Route: 048
     Dates: start: 20080901
  3. COUMADIN [Concomitant]
  4. ACETAMINOPHEN [Concomitant]
  5. ALBUTEROL [Concomitant]
  6. IPRATROPIUM BROMIDE [Concomitant]
  7. ARTIFICIAL TEARS (HYPROMELLOSE) [Concomitant]
  8. ASPIRIN [Concomitant]
  9. FUROSEMIDE (FUROSEMIDE SODIUM) [Concomitant]
  10. INSULIN (INSULIN) [Concomitant]
  11. METOPROLOL TARTRATE [Concomitant]
  12. PROTONIX [Concomitant]

REACTIONS (36)
  - ACUTE RESPIRATORY FAILURE [None]
  - ANAEMIA [None]
  - AUTOIMMUNE HEPATITIS [None]
  - BACTERAEMIA [None]
  - BLOOD CULTURE POSITIVE [None]
  - BODY TEMPERATURE DECREASED [None]
  - CARDIAC FAILURE CONGESTIVE [None]
  - CHOLESTASIS [None]
  - COAGULOPATHY [None]
  - DECREASED APPETITE [None]
  - EPISTAXIS [None]
  - FLUID OVERLOAD [None]
  - HAEMORRHAGE [None]
  - HEMIPARESIS [None]
  - HEPATIC CIRRHOSIS [None]
  - HEPATIC FAILURE [None]
  - HEPATIC HAEMORRHAGE [None]
  - HEPATIC ISCHAEMIA [None]
  - HEPATOTOXICITY [None]
  - HYPERGLYCAEMIA [None]
  - HYPERPHOSPHATAEMIA [None]
  - HYPOPERFUSION [None]
  - INTERNATIONAL NORMALISED RATIO INCREASED [None]
  - LACTIC ACIDOSIS [None]
  - LEUKOCYTOSIS [None]
  - MENTAL STATUS CHANGES [None]
  - METABOLIC ACIDOSIS [None]
  - MOROSE [None]
  - MULTI-ORGAN FAILURE [None]
  - OEDEMA PERIPHERAL [None]
  - PULMONARY HYPERTENSION [None]
  - RENAL FAILURE ACUTE [None]
  - RENAL TUBULAR NECROSIS [None]
  - SEPTIC SHOCK [None]
  - URINARY TRACT INFECTION [None]
  - WEIGHT DECREASED [None]
